FAERS Safety Report 13776127 (Version 1)
Quarter: 2017Q3

REPORT INFORMATION
  Report Type: Spontaneous
  Country: MX (occurrence: MX)
  Receive Date: 20170721
  Receipt Date: 20170721
  Transmission Date: 20171127
  Serious: Yes (Death, Other)
  Sender: FDA-Public Use
  Company Number: MX-BAYER-2017-133953

PATIENT
  Sex: Male
  Weight: .58 kg

DRUGS (3)
  1. ACETYLSALICYLIC ACID({=100 MG) [Suspect]
     Active Substance: ASPIRIN
  2. FOLIC ACID. [Concomitant]
     Active Substance: FOLIC ACID
  3. ENOXAPARIN [Concomitant]
     Active Substance: ENOXAPARIN
     Dosage: 20 MG, QD

REACTIONS (5)
  - Haemorrhagic cerebral infarction [Fatal]
  - Premature baby [None]
  - Low birth weight baby [None]
  - Mesenteric artery thrombosis [Fatal]
  - Foetal exposure during pregnancy [None]

NARRATIVE: CASE EVENT DATE: 2007
